FAERS Safety Report 21115511 (Version 1)
Quarter: 2022Q3

REPORT INFORMATION
  Report Type: Spontaneous
  Country: US (occurrence: US)
  Receive Date: 20220721
  Receipt Date: 20220721
  Transmission Date: 20221027
  Serious: No
  Sender: FDA-Public Use
  Company Number: US-BRACCO-2022US01933

PATIENT
  Age: 2 Year
  Sex: Female

DRUGS (1)
  1. READI-CAT 2 [Suspect]
     Active Substance: BARIUM SULFATE
     Indication: Diagnostic procedure
     Dosage: UNK
     Dates: start: 20220518, end: 20220518

REACTIONS (2)
  - Accidental exposure to product by child [Unknown]
  - No adverse event [Unknown]

NARRATIVE: CASE EVENT DATE: 20220518
